FAERS Safety Report 8581851-9 (Version None)
Quarter: 2012Q3

REPORT INFORMATION
  Report Type: 
  Country: None (occurrence: None)
  Receive Date: 20120809
  Receipt Date: 20120731
  Transmission Date: 20120928
  Serious: Yes (Hospitalization)
  Sender: FDA-Public Use
  Company Number: JP-JNJFOC-20120205313

PATIENT
  Sex: Female
  Weight: 56 kg

DRUGS (20)
  1. SIMPONI [Suspect]
     Indication: RHEUMATOID ARTHRITIS
     Route: 058
     Dates: start: 20111227
  2. VITAMIN B12 [Concomitant]
     Route: 048
  3. LIPITOR [Concomitant]
     Route: 048
  4. SIMPONI [Suspect]
     Route: 058
     Dates: start: 20120124
  5. SIMPONI [Suspect]
     Route: 058
     Dates: start: 20111101
  6. FERROUS SULFATE TAB [Concomitant]
     Route: 048
  7. SIMPONI [Suspect]
     Route: 058
     Dates: start: 20120319
  8. SIMPONI [Suspect]
     Route: 058
     Dates: start: 20120417
  9. FOLIC ACID [Concomitant]
     Indication: PROPHYLAXIS
     Route: 048
     Dates: end: 20111203
  10. LANSOPRAZOLE [Concomitant]
     Route: 048
  11. DORNER [Concomitant]
     Route: 048
  12. METHOTREXATE [Suspect]
     Route: 048
     Dates: start: 20111229
  13. SENNARIDE [Concomitant]
     Route: 048
  14. SIMPONI [Suspect]
     Route: 058
     Dates: start: 20111129
  15. METHOTREXATE [Suspect]
     Indication: PRODUCT USED FOR UNKNOWN INDICATION
     Route: 048
     Dates: start: 20110801, end: 20111205
  16. MOBIC [Concomitant]
     Indication: RHEUMATOID ARTHRITIS
     Route: 048
  17. SIMPONI [Suspect]
     Route: 058
     Dates: start: 20120220
  18. SOFALCONE [Concomitant]
     Route: 048
  19. TANATRIL [Concomitant]
     Route: 048
  20. NEUTROGIN [Concomitant]
     Route: 048

REACTIONS (1)
  - BRONCHOPNEUMONIA [None]
